FAERS Safety Report 9270344 (Version 1)
Quarter: 2013Q2

REPORT INFORMATION
  Report Type: Spontaneous
  Country: US (occurrence: US)
  Receive Date: 20130503
  Receipt Date: 20130503
  Transmission Date: 20140414
  Serious: No
  Sender: FDA-Public Use
  Company Number: US-009507513-1305USA001109

PATIENT
  Sex: 0

DRUGS (3)
  1. PEGINTRON [Suspect]
     Indication: HEPATITIS C
     Dosage: UNK
     Dates: start: 20130227
  2. VICTRELIS [Suspect]
     Dosage: UNK
     Route: 048
  3. REBETOL [Suspect]
     Route: 048

REACTIONS (3)
  - Tooth fracture [Unknown]
  - Tooth extraction [Unknown]
  - Dehydration [Unknown]
